FAERS Safety Report 23354732 (Version 1)
Quarter: 2024Q1

REPORT INFORMATION
  Report Type: Spontaneous
  Country: US (occurrence: US)
  Receive Date: 20240101
  Receipt Date: 20240101
  Transmission Date: 20240409
  Serious: No
  Sender: FDA-Public Use
  Company Number: US-BAUSCH-BL-2023-019245

PATIENT
  Age: 39 Year
  Sex: Male

DRUGS (1)
  1. LORAZEPAM [Suspect]
     Active Substance: LORAZEPAM
     Indication: Product used for unknown indication
     Dosage: ONE AND HALF TO ONE TO 0 ABOUT A WEEK.
     Route: 065

REACTIONS (2)
  - Nodule [Unknown]
  - Lower urinary tract symptoms [Unknown]
